FAERS Safety Report 4842605-X (Version None)
Quarter: 2005Q4

REPORT INFORMATION
  Report Type: 
  Country: None (occurrence: None)
  Receive Date: 20051201
  Receipt Date: 20051101
  Transmission Date: 20060501
  Serious: Yes (Hospitalization)
  Sender: FDA-Public Use
  Company Number: PL-GLAXOSMITHKLINE-B0399126A

PATIENT
  Age: 62 Year
  Sex: Male
  Weight: 80.5 kg

DRUGS (2)
  1. ROPINIROLE [Suspect]
     Indication: PARKINSON'S DISEASE
     Dosage: 24MG PER DAY
     Route: 048
     Dates: start: 20041011
  2. OMNIC [Concomitant]
     Dosage: .4MG PER DAY
     Route: 048
     Dates: end: 20050701

REACTIONS (1)
  - BENIGN PROSTATIC HYPERPLASIA [None]
